FAERS Safety Report 24004795 (Version 1)
Quarter: 2024Q2

REPORT INFORMATION
  Report Type: Spontaneous
  Country: US (occurrence: US)
  Receive Date: 20240624
  Receipt Date: 20240624
  Transmission Date: 20240716
  Serious: Yes (Life-Threatening, Hospitalization)
  Sender: FDA-Public Use
  Company Number: US-STERISCIENCE B.V.-2024-ST-000845

PATIENT
  Age: 33 Year
  Sex: Female

DRUGS (2)
  1. NAFCILLIN [Suspect]
     Active Substance: NAFCILLIN SODIUM
     Indication: Staphylococcal infection
     Dosage: UNK
     Route: 042
  2. THIAMINE [Suspect]
     Active Substance: THIAMINE
     Indication: Vitamin supplementation
     Dosage: UNK HIGH DOSE
     Route: 051

REACTIONS (3)
  - Drug ineffective [Unknown]
  - Foetal death [Unknown]
  - Exposure during pregnancy [Unknown]
